FAERS Safety Report 5679072-2 (Version None)
Quarter: 2008Q1

REPORT INFORMATION
  Report Type: 
  Country: None (occurrence: None)
  Receive Date: 20080325
  Receipt Date: 20080314
  Transmission Date: 20080703
  Serious: Yes (Hospitalization, Other)
  Sender: FDA-Public Use
  Company Number: US-JNJFOC-20080301482

PATIENT
  Sex: Female
  Weight: 45.36 kg

DRUGS (6)
  1. FENTANYL TRANSDERMAL SYSTEM [Suspect]
     Route: 062
  2. FENTANYL TRANSDERMAL SYSTEM [Suspect]
     Route: 062
  3. FENTANYL TRANSDERMAL SYSTEM [Suspect]
     Route: 062
  4. FENTANYL TRANSDERMAL SYSTEM [Suspect]
     Route: 062
  5. FENTANYL TRANSDERMAL SYSTEM [Suspect]
     Indication: PAIN
     Route: 062
  6. LORAZEPAM [Concomitant]
     Indication: ANXIETY
     Route: 048

REACTIONS (11)
  - ANALGESIC DRUG LEVEL DECREASED [None]
  - CONVULSION [None]
  - DEVICE MIGRATION [None]
  - FALL [None]
  - LIMB OPERATION [None]
  - LOWER LIMB FRACTURE [None]
  - MEMORY IMPAIRMENT [None]
  - PAIN [None]
  - TOOTH DISORDER [None]
  - TOOTH LOSS [None]
  - UNEVALUABLE EVENT [None]
